FAERS Safety Report 4595608-7 (Version None)
Quarter: 2005Q1

REPORT INFORMATION
  Report Type: 
  Country: None (occurrence: None)
  Receive Date: 20050302
  Receipt Date: 20050217
  Transmission Date: 20050727
  Serious: Yes (Other)
  Sender: FDA-Public Use
  Company Number: PHBS2005ZA02694

PATIENT
  Sex: Female

DRUGS (1)
  1. LAMISIL [Suspect]
     Indication: TINEA PEDIS
     Route: 048

REACTIONS (4)
  - BRONCHOSPASM [None]
  - DYSPNOEA [None]
  - MALAISE [None]
  - URTICARIA [None]
